FAERS Safety Report 5710303-6 (Version None)
Quarter: 2008Q2

REPORT INFORMATION
  Report Type: 
  Country: None (occurrence: None)
  Receive Date: 20080418
  Receipt Date: 20080407
  Transmission Date: 20081010
  Serious: Yes (Other)
  Sender: FDA-Public Use
  Company Number: US-PFIZER INC-2008030459

PATIENT
  Sex: Female
  Weight: 84.1 kg

DRUGS (7)
  1. CHANTIX [Suspect]
     Indication: SMOKING CESSATION THERAPY
     Dates: start: 20080324, end: 20080407
  2. UNIPHYL [Concomitant]
  3. LORAZEPAM [Concomitant]
  4. DUONEB [Concomitant]
  5. XOPENEX [Concomitant]
  6. ESTRADIOL [Concomitant]
  7. OPHTHALMOLOGICALS [Concomitant]
     Route: 047

REACTIONS (4)
  - DRUG ADMINISTRATION ERROR [None]
  - DRY EYE [None]
  - RENAL PAIN [None]
  - VISUAL ACUITY REDUCED [None]
